FAERS Safety Report 14961424 (Version 1)
Quarter: 2018Q2

REPORT INFORMATION
  Report Type: Report from Study
  Country: ES (occurrence: ES)
  Receive Date: 20180601
  Receipt Date: 20180601
  Transmission Date: 20180711
  Serious: Yes (Hospitalization)
  Sender: FDA-Public Use
  Company Number: ES-TEVA-2018-ES-900270

PATIENT
  Age: 68 Year
  Sex: Male

DRUGS (6)
  1. PALEXIA 50 MG COMPRIMIDOS RECUBIERTOS CON PELICULA, 100 COMPRIMIDOS [Concomitant]
     Indication: PAIN
     Dosage: 100 MILLIGRAM DAILY;
     Route: 048
     Dates: start: 20161123, end: 20161211
  2. FUROSEMIDA (1615A) [Concomitant]
     Active Substance: FUROSEMIDE
     Dosage: 40 MILLIGRAM DAILY;
     Route: 048
     Dates: start: 20110329, end: 20161211
  3. SINTROM [Concomitant]
     Active Substance: ACENOCOUMAROL
     Route: 048
     Dates: start: 20110329, end: 20161211
  4. CIPROFLOXACINO (2049A) [Suspect]
     Active Substance: CIPROFLOXACIN
     Indication: INFECTED SKIN ULCER
     Dosage: 500 MILLIGRAM DAILY;
     Route: 048
     Dates: start: 20161207, end: 20161211
  5. DICLOFENACO (745A) [Suspect]
     Active Substance: DICLOFENAC
     Dosage: 200 MILLIGRAM DAILY;
     Route: 048
     Dates: start: 20161123, end: 20161211
  6. VALSARTAN (7423A) [Concomitant]
     Active Substance: VALSARTAN
     Indication: RENOVASCULAR HYPERTENSION
     Dosage: 320 MILLIGRAM DAILY;
     Route: 048
     Dates: start: 20121019, end: 20161211

REACTIONS (1)
  - Tubulointerstitial nephritis [Recovering/Resolving]

NARRATIVE: CASE EVENT DATE: 201612
